FAERS Safety Report 6047765-3 (Version None)
Quarter: 2009Q1

REPORT INFORMATION
  Report Type: 
  Country: None (occurrence: None)
  Receive Date: 20090123
  Receipt Date: 20090120
  Transmission Date: 20090719
  Serious: Yes (Other)
  Sender: FDA-Public Use
  Company Number: GB-JNJFOC-20080703024

PATIENT
  Sex: Female

DRUGS (7)
  1. REMINYL XR [Suspect]
     Route: 048
  2. REMINYL XR [Suspect]
     Route: 048
  3. REMINYL XR [Suspect]
     Indication: DEMENTIA ALZHEIMER'S TYPE
     Route: 048
  4. IRBESARTAN [Concomitant]
     Indication: DRUG USE FOR UNKNOWN INDICATION
  5. LEVOTHYROXINE SODIUM [Concomitant]
     Indication: DRUG USE FOR UNKNOWN INDICATION
  6. ASPIRIN [Concomitant]
     Indication: DRUG USE FOR UNKNOWN INDICATION
  7. FYBOGEL [Concomitant]
     Indication: DRUG USE FOR UNKNOWN INDICATION

REACTIONS (1)
  - DYSKINESIA [None]
